FAERS Safety Report 21669131 (Version 1)
Quarter: 2022Q4

REPORT INFORMATION
  Report Type: Spontaneous
  Country: HK (occurrence: HK)
  Receive Date: 20221201
  Receipt Date: 20221201
  Transmission Date: 20230113
  Serious: Yes (Other)
  Sender: FDA-Public Use
  Company Number: HK-PFIZER INC-202201334153

PATIENT
  Age: 66 Year
  Sex: Male

DRUGS (1)
  1. PAXLOVID [Suspect]
     Active Substance: NIRMATRELVIR\RITONAVIR
     Indication: COVID-19 treatment
     Dosage: COMPLETED THE 5-DAY COURSE
     Dates: start: 20221121, end: 20221125

REACTIONS (10)
  - Deafness unilateral [Unknown]
  - Weight decreased [Unknown]
  - Fatigue [Unknown]
  - Somnolence [Unknown]
  - Decreased appetite [Unknown]
  - Dyspnoea [Unknown]
  - Headache [Unknown]
  - Asthenia [Unknown]
  - Dizziness [Unknown]
  - Gait disturbance [Unknown]

NARRATIVE: CASE EVENT DATE: 20221123
